FAERS Safety Report 9148431 (Version 2)
Quarter: 2013Q1

REPORT INFORMATION
  Report Type: Spontaneous
  Country: KR (occurrence: KR)
  Receive Date: 20130308
  Receipt Date: 20130322
  Transmission Date: 20140127
  Serious: Yes (Other)
  Sender: FDA-Public Use
  Company Number: PHHY2013KR021888

PATIENT
  Sex: Male

DRUGS (2)
  1. GLIVEC [Suspect]
     Indication: GASTROINTESTINAL STROMAL TUMOUR
     Dosage: 400 MG, QD
     Route: 048
     Dates: start: 20130206, end: 20130312
  2. GLIVEC [Suspect]
     Dosage: 300 UNK, UNK
     Route: 048
     Dates: start: 20130313

REACTIONS (5)
  - Enteritis [Unknown]
  - Orbital oedema [Not Recovered/Not Resolved]
  - Oedema peripheral [Unknown]
  - Abdominal discomfort [Unknown]
  - Nausea [Unknown]
